FAERS Safety Report 10015599 (Version 3)
Quarter: 2014Q1

REPORT INFORMATION
  Report Type: Report from Study
  Country: AU (occurrence: AU)
  Receive Date: 20140317
  Receipt Date: 20140328
  Transmission Date: 20141002
  Serious: Yes (Hospitalization, Other)
  Sender: FDA-Public Use
  Company Number: AU-INCYTE CORPORATION-2014IN000276

PATIENT
  Age: 75 Year
  Sex: Male

DRUGS (2)
  1. JAKAVI [Suspect]
     Indication: MYELOFIBROSIS
     Dosage: 15 MG, BID
     Route: 048
     Dates: start: 201306, end: 20140303
  2. JAKAVI [Suspect]
     Dosage: 5MG, BID
     Route: 048
     Dates: start: 20140304

REACTIONS (9)
  - Bone marrow failure [Recovering/Resolving]
  - Pancytopenia [Recovering/Resolving]
  - Cellulitis [Not Recovered/Not Resolved]
  - Abscess limb [Not Recovered/Not Resolved]
  - Anaemia [Unknown]
  - Leukopenia [Unknown]
  - Toxicity to various agents [Unknown]
  - Thrombocytopenia [Unknown]
  - Neutropenia [Unknown]
